FAERS Safety Report 18806641 (Version 1)
Quarter: 2021Q1

REPORT INFORMATION
  Report Type: Spontaneous
  Country: US (occurrence: US)
  Receive Date: 20210128
  Receipt Date: 20210128
  Transmission Date: 20210419
  Serious: No
  Sender: FDA-Public Use
  Company Number: None

PATIENT
  Age: 79 Year
  Sex: Female

DRUGS (12)
  1. ATORVASTATIN [Concomitant]
     Active Substance: ATORVASTATIN
  2. DOCUSATE [Concomitant]
     Active Substance: DOCUSATE
  3. CLOPIDOGREL [Concomitant]
     Active Substance: CLOPIDOGREL BISULFATE
  4. METOPROL TAR [Concomitant]
  5. ONDANSETRON [Concomitant]
     Active Substance: ONDANSETRON
  6. AMODARIONE [Concomitant]
  7. FUROSEMIDE. [Concomitant]
     Active Substance: FUROSEMIDE
  8. LISINOPRIL. [Concomitant]
     Active Substance: LISINOPRIL
  9. VYNDAMAX [Suspect]
     Active Substance: TAFAMIDIS
     Indication: PRODUCT USED FOR UNKNOWN INDICATION
     Route: 048
  10. ELIQUIS [Concomitant]
     Active Substance: APIXABAN
  11. OMPRAZOLE [Concomitant]
     Active Substance: OMEPRAZOLE
  12. POT CHLORIDE [Concomitant]
     Active Substance: POTASSIUM CHLORIDE

REACTIONS (4)
  - Nausea [None]
  - Constipation [None]
  - Alopecia [None]
  - Vomiting [None]

NARRATIVE: CASE EVENT DATE: 20210119
